FAERS Safety Report 5728289-7 (Version None)
Quarter: 2008Q2

REPORT INFORMATION
  Report Type: 
  Country: None (occurrence: None)
  Receive Date: 20080502
  Receipt Date: 20080502
  Transmission Date: 20081010
  Serious: Yes (Other)
  Sender: FDA-Public Use
  Company Number: None

PATIENT
  Sex: Male
  Weight: 81.22 kg

DRUGS (1)
  1. VANCOMYCIN [Suspect]
     Indication: STAPHYLOCOCCAL INFECTION
     Dosage: 1 GM Q12H IV
     Route: 042
     Dates: start: 20080425, end: 20080429

REACTIONS (2)
  - MUSCLE SPASMS [None]
  - RED MAN SYNDROME [None]
